FAERS Safety Report 6477850-3 (Version None)
Quarter: 2009Q4

REPORT INFORMATION
  Report Type: 
  Country: None (occurrence: None)
  Receive Date: 20091207
  Receipt Date: 20091125
  Transmission Date: 20100525
  Serious: Yes (Other)
  Sender: FDA-Public Use
  Company Number: AU-ELI_LILLY_AND_COMPANY-AU200911006630

PATIENT
  Age: 55 Year
  Sex: Male

DRUGS (10)
  1. OLANZAPINE [Suspect]
     Indication: MANIA
     Dosage: 20 MG, DAILY (1/D)
     Route: 065
  2. OLANZAPINE [Suspect]
     Dosage: 20 MG, DAILY (1/D)
     Route: 065
  3. VALPROATE SODIUM [Concomitant]
     Indication: MANIA
     Dosage: 500 MG, 2/D
     Route: 065
  4. VALPROATE SODIUM [Concomitant]
     Dosage: 2 G, DAILY (1/D)
     Route: 065
  5. VALPROATE SODIUM [Concomitant]
     Dosage: 2.5 G, DAILY (1/D)
     Route: 065
  6. LORAZEPAM [Concomitant]
     Indication: MANIA
     Dosage: 6 MG, DAILY (1/D)
     Route: 065
  7. LORAZEPAM [Concomitant]
     Dosage: 6 MG, DAILY (1/D)
     Route: 065
  8. LORAZEPAM [Concomitant]
     Dosage: 2 MG, DAILY (1/D)
     Route: 065
  9. HYDROCHLOROTHIAZIDE W/IRBESARTAN [Concomitant]
     Indication: DELIRIUM
     Dosage: 150/1205
     Route: 065
  10. ATORVASTATIN [Concomitant]
     Indication: DELIRIUM
     Dosage: 20 MG, DAILY (1/D)
     Route: 065

REACTIONS (1)
  - DELIRIUM [None]
